FAERS Safety Report 5485297-1 (Version None)
Quarter: 2007Q4

REPORT INFORMATION
  Report Type: 
  Country: None (occurrence: None)
  Receive Date: 20071010
  Receipt Date: 20071010
  Transmission Date: 20080405
  Serious: Yes (Life-Threatening)
  Sender: FDA-Public Use
  Company Number: None

PATIENT
  Sex: Male
  Weight: 13.8 kg

DRUGS (7)
  1. DACTINOMYCIN [Suspect]
     Indication: NEPHROBLASTOMA
     Dosage: 0.6 MG - 0.045 MG/KG EVERY 3 WEEKS IV
     Route: 042
     Dates: start: 20070904, end: 20070925
  2. VINCRISTINE [Concomitant]
  3. ONDANSETRON [Concomitant]
  4. MIRALAX [Concomitant]
  5. BACTRIM [Concomitant]
  6. NIFEREX [Concomitant]
  7. CEPHALEXIN [Concomitant]

REACTIONS (2)
  - CONTINUOUS HAEMODIAFILTRATION [None]
  - VENOOCCLUSIVE LIVER DISEASE [None]
